FAERS Safety Report 6729312-3 (Version None)
Quarter: 2010Q2

REPORT INFORMATION
  Report Type: 
  Country: None (occurrence: None)
  Receive Date: 20100517
  Receipt Date: 20100507
  Transmission Date: 20101027
  Serious: No
  Sender: FDA-Public Use
  Company Number: US-ABBOTT-10P-163-0642941-00

PATIENT
  Sex: Male
  Weight: 93.07 kg

DRUGS (2)
  1. SIMCOR [Suspect]
     Indication: HYPERLIPIDAEMIA
     Dosage: 500/20 MILLIGRAMS
     Dates: start: 20100429, end: 20100505
  2. ONE A DAY [Concomitant]
     Indication: VITAMIN SUPPLEMENTATION

REACTIONS (1)
  - BACK PAIN [None]
